FAERS Safety Report 6247188-8 (Version None)
Quarter: 2009Q2

REPORT INFORMATION
  Report Type: 
  Country: None (occurrence: None)
  Receive Date: 20090626
  Receipt Date: 20090615
  Transmission Date: 20091009
  Serious: Yes (Other)
  Sender: FDA-Public Use
  Company Number: US-PFIZER INC-2009227043

PATIENT
  Sex: Female

DRUGS (2)
  1. DOXORUBICIN HCL [Suspect]
     Indication: BREAST CANCER
     Dosage: 60 MG, CYCLICAL
     Route: 042
     Dates: start: 20090423, end: 20090423
  2. CYCLOPHOSPHAMIDE [Suspect]
     Indication: BREAST CANCER
     Dosage: 600 MG, CYCLICAL
     Route: 042
     Dates: start: 20090423, end: 20090423

REACTIONS (2)
  - HYPERTENSION [None]
  - NAUSEA [None]
